FAERS Safety Report 6461235-X (Version None)
Quarter: 2009Q4

REPORT INFORMATION
  Report Type: 
  Country: None (occurrence: None)
  Receive Date: 20091130
  Receipt Date: 20091117
  Transmission Date: 20100525
  Serious: Yes (Hospitalization)
  Sender: FDA-Public Use
  Company Number: FR-ASTRAZENECA-2009SE27224

PATIENT
  Age: 76 Year
  Sex: Male

DRUGS (16)
  1. NEXIUM [Suspect]
     Route: 048
     Dates: end: 20090522
  2. DEROXAT [Suspect]
     Route: 048
  3. TEMESTA [Suspect]
     Route: 048
     Dates: end: 20090522
  4. LOXEN E.R [Suspect]
     Route: 048
  5. DEPAKENE [Suspect]
     Route: 048
  6. IXPRIM [Suspect]
     Route: 048
     Dates: end: 20090513
  7. VALIUM [Suspect]
     Route: 048
     Dates: end: 20090517
  8. VALIUM [Suspect]
     Route: 048
     Dates: start: 20090517, end: 20090522
  9. DIPIPERON [Suspect]
     Route: 048
     Dates: start: 20090314, end: 20090517
  10. DIPIPERON [Suspect]
     Route: 048
     Dates: start: 20090517, end: 20090522
  11. FURADANTIN [Suspect]
     Route: 048
     Dates: start: 20090516, end: 20090523
  12. KARDEGIC [Concomitant]
     Route: 048
  13. VITAMIN B COMPLEX CAP [Concomitant]
     Route: 048
  14. FORLAX [Concomitant]
     Indication: CONSTIPATION
  15. AUGMENTIN [Concomitant]
     Route: 042
     Dates: start: 20090522, end: 20090526
  16. OFLOCET [Concomitant]
     Route: 042
     Dates: start: 20090522, end: 20090526

REACTIONS (1)
  - FALL [None]
